FAERS Safety Report 8987674 (Version 1)
Quarter: 2012Q4

REPORT INFORMATION
  Report Type: 
  Country: US (occurrence: US)
  Receive Date: 20121227
  Receipt Date: 20121227
  Transmission Date: 20130627
  Serious: No
  Sender: FDA-Public Use
  Company Number: US-ASTRAZENECA-2012SE13908

PATIENT
  Age: 72 Year
  Sex: Female

DRUGS (3)
  1. ATACAND [Suspect]
     Route: 048
  2. NEXIUM [Suspect]
     Route: 048
  3. TOPROL XL [Suspect]
     Route: 048

REACTIONS (4)
  - Blood pressure abnormal [Unknown]
  - Ill-defined disorder [Unknown]
  - Adverse event [Unknown]
  - Drug dose omission [Unknown]
